FAERS Safety Report 12311621 (Version 2)
Quarter: 2016Q2

REPORT INFORMATION
  Report Type: Spontaneous
  Country: DE (occurrence: JP)
  Receive Date: 20160427
  Receipt Date: 20160527
  Transmission Date: 20160815
  Serious: Yes (Hospitalization)
  Sender: FDA-Public Use
  Company Number: JP-FRI-1000084167

PATIENT
  Sex: Male

DRUGS (8)
  1. MEMANTINE. [Suspect]
     Active Substance: MEMANTINE
     Indication: DEMENTIA ALZHEIMER^S TYPE
     Dosage: 5 MG
     Route: 048
     Dates: start: 20160316, end: 20160316
  2. ISOSORBIDE DINITRATE. [Concomitant]
     Active Substance: ISOSORBIDE DINITRATE
     Dates: start: 20160316
  3. BENIDIPINE [Concomitant]
     Active Substance: BENIDIPINE
     Dates: start: 20160316
  4. CILOSTAZOL. [Concomitant]
     Active Substance: CILOSTAZOL
     Dates: start: 20160316
  5. AZOSEMIDE [Concomitant]
     Active Substance: AZOSEMIDE
     Dates: start: 20160316
  6. MEMANTINE. [Suspect]
     Active Substance: MEMANTINE
     Dosage: 1 MG
     Dates: start: 20160323
  7. XARELTO [Concomitant]
     Active Substance: RIVAROXABAN
     Dates: start: 20160316
  8. NESINA [Concomitant]
     Active Substance: ALOGLIPTIN BENZOATE
     Dates: start: 20160316

REACTIONS (1)
  - Sedation [Recovering/Resolving]

NARRATIVE: CASE EVENT DATE: 20160317
